FAERS Safety Report 18499419 (Version 1)
Quarter: 2020Q4

REPORT INFORMATION
  Report Type: Spontaneous
  Country: US (occurrence: US)
  Receive Date: 20201113
  Receipt Date: 20201113
  Transmission Date: 20210114
  Serious: No
  Sender: FDA-Public Use
  Company Number: US-JNJFOC-20201111290

PATIENT
  Age: 23 Year
  Sex: Female

DRUGS (3)
  1. DABRAFENIB [Concomitant]
     Active Substance: DABRAFENIB
     Indication: GLIOBLASTOMA
     Dosage: 150 MG TWICE DAILY
     Route: 065
  2. PARACETAMOL [Suspect]
     Active Substance: ACETAMINOPHEN
     Indication: PYREXIA
     Route: 065
  3. TRAMETINIB [Concomitant]
     Active Substance: TRAMETINIB
     Indication: GLIOBLASTOMA
     Dosage: 2 MG ONCE?DAILY
     Route: 065

REACTIONS (1)
  - Condition aggravated [Unknown]
